FAERS Safety Report 19162533 (Version 1)
Quarter: 2021Q2

REPORT INFORMATION
  Report Type: Report from Study
  Country: BR (occurrence: BR)
  Receive Date: 20210420
  Receipt Date: 20210420
  Transmission Date: 20210717
  Serious: Yes (Other)
  Sender: FDA-Public Use
  Company Number: BR-JNJFOC-20210429488

PATIENT
  Age: 59 Year
  Sex: Female
  Weight: 50 kg

DRUGS (1)
  1. BIO?MANGUINHOS INFLIXIMABE [Suspect]
     Active Substance: INFLIXIMAB
     Indication: RHEUMATOID ARTHRITIS
     Dosage: 2 VIALS
     Route: 042
     Dates: start: 20180301

REACTIONS (7)
  - Retinal detachment [Unknown]
  - Decreased appetite [Unknown]
  - Hypersensitivity [Unknown]
  - Stomatitis [Unknown]
  - Headache [Unknown]
  - COVID-19 [Unknown]
  - Retinal vascular thrombosis [Unknown]

NARRATIVE: CASE EVENT DATE: 202012
